FAERS Safety Report 6680192-4 (Version None)
Quarter: 2010Q2

REPORT INFORMATION
  Report Type: 
  Country: None (occurrence: None)
  Receive Date: 20100413
  Receipt Date: 20100402
  Transmission Date: 20101027
  Serious: Yes (Other)
  Sender: FDA-Public Use
  Company Number: JP-ELI_LILLY_AND_COMPANY-JP201001005406

PATIENT
  Sex: Male
  Weight: 58.1 kg

DRUGS (6)
  1. STRATTERA [Suspect]
     Indication: ATTENTION DEFICIT/HYPERACTIVITY DISORDER
     Dosage: 10 MG, 2/D
     Route: 048
     Dates: start: 20090731, end: 20090812
  2. STRATTERA [Suspect]
     Dosage: 15 MG, 2/D
     Route: 048
     Dates: start: 20090812, end: 20090826
  3. STRATTERA [Suspect]
     Dosage: 25 MG, 2/D
     Route: 048
     Dates: start: 20090826, end: 20090911
  4. STRATTERA [Suspect]
     Dosage: 35 MG, 2/D
     Route: 048
     Dates: start: 20090911, end: 20091228
  5. STRATTERA [Suspect]
     Dosage: 50 MG, DAILY (1/D)
     Route: 048
     Dates: start: 20091229
  6. STRATTERA [Suspect]
     Dosage: 20 MG, DAILY (1/D)
     Route: 048
     Dates: end: 20100112

REACTIONS (3)
  - AGGRESSION [None]
  - ANGER [None]
  - IMPULSIVE BEHAVIOUR [None]
